FAERS Safety Report 8698762 (Version 3)
Quarter: 2013Q2

REPORT INFORMATION
  Report Type: Spontaneous
  Country: US (occurrence: US)
  Receive Date: 20120802
  Receipt Date: 20130603
  Transmission Date: 20140414
  Serious: Yes (Hospitalization)
  Sender: FDA-Public Use
  Company Number: US-BAYER-2012-075160

PATIENT
  Age: 48 Year
  Sex: Female
  Weight: 121 kg

DRUGS (12)
  1. SAFYRAL [Suspect]
     Dosage: UNK
     Dates: start: 20110527, end: 20110802
  2. YAZ [Suspect]
  3. YASMIN [Suspect]
  4. OCELLA [Suspect]
  5. LISINOPRIL/HYDROCHLOROTHIAZIDE [Concomitant]
     Dosage: 12.5MG/10MG ONCE DAILY
  6. IBUPROFEN [Concomitant]
     Dosage: 600 MG, UNK
  7. KETOCONAZOLE [Concomitant]
     Dosage: 2 %, QD
     Route: 061
  8. KEFLEX [Concomitant]
  9. LISINOPRIL [Concomitant]
     Indication: HYPERTENSION
     Dosage: UNK
     Dates: start: 2003
  10. AYGESTIN [Concomitant]
     Indication: DYSFUNCTIONAL UTERINE BLEEDING
     Dosage: UNK
     Dates: start: 201105
  11. AYGESTIN [Concomitant]
     Indication: DYSFUNCTIONAL UTERINE BLEEDING
     Dosage: UNK
     Dates: start: 201108, end: 201111
  12. NSAID^S [Concomitant]
     Dosage: UNK
     Dates: start: 20110527, end: 20110802

REACTIONS (7)
  - Deep vein thrombosis [Recovering/Resolving]
  - Thrombophlebitis superficial [Recovered/Resolved]
  - Deep vein thrombosis [Recovered/Resolved]
  - Injury [Recovering/Resolving]
  - Pain [Recovering/Resolving]
  - Emotional distress [None]
  - Mental disorder [None]
